FAERS Safety Report 25170179 (Version 2)
Quarter: 2025Q3

REPORT INFORMATION
  Report Type: Spontaneous
  Country: US (occurrence: US)
  Receive Date: 20250407
  Receipt Date: 20250813
  Transmission Date: 20251021
  Serious: No
  Sender: SANOFI AVENTIS
  Company Number: US-SA-2025SA098259

PATIENT
  Sex: Female

DRUGS (1)
  1. DUPIXENT [Suspect]
     Active Substance: DUPILUMAB
     Indication: Dermatitis atopic
     Dosage: 300 MG, QOW
     Route: 058
     Dates: start: 20210831

REACTIONS (5)
  - Sleep disorder due to a general medical condition [Unknown]
  - Myalgia [Unknown]
  - Drug ineffective [Unknown]
  - Eye irritation [Unknown]
  - Injection site reaction [Unknown]
